FAERS Safety Report 7935726-6 (Version None)
Quarter: 2011Q4

REPORT INFORMATION
  Report Type: 
  Country: None (occurrence: None)
  Receive Date: 20111123
  Receipt Date: 20111031
  Transmission Date: 20120403
  Serious: Yes (Hospitalization)
  Sender: FDA-Public Use
  Company Number: CA-JNJFOC-20111102213

PATIENT
  Sex: Female
  Weight: 61.3 kg

DRUGS (8)
  1. REMICADE [Suspect]
     Indication: RHEUMATOID ARTHRITIS
     Route: 042
     Dates: start: 20031205
  2. METHOTREXATE [Concomitant]
     Route: 065
  3. ENTROPHEN [Concomitant]
     Route: 065
  4. ARAVA [Concomitant]
     Route: 065
  5. ANSAID [Concomitant]
     Route: 065
  6. MICARDIS [Concomitant]
     Route: 065
  7. FOLIC ACID [Concomitant]
     Route: 065
  8. PEPCID [Concomitant]
     Route: 065

REACTIONS (1)
  - UPPER LIMB FRACTURE [None]
